FAERS Safety Report 8520429 (Version 3)
Quarter: 2013Q3

REPORT INFORMATION
  Report Type: Spontaneous
  Country: US (occurrence: US)
  Receive Date: 20120418
  Receipt Date: 20130813
  Transmission Date: 20140515
  Serious: Yes (Hospitalization)
  Sender: FDA-Public Use
  Company Number: US-B.I. PHARMACEUTICALS,INC./RIDGEFIELD-2012-BP-07197BP

PATIENT
  Age: 77 Year
  Sex: Female
  Weight: 54.43 kg

DRUGS (7)
  1. PRADAXA [Suspect]
     Indication: ATRIAL FIBRILLATION
     Dosage: 300 MG
     Route: 048
     Dates: start: 20111001, end: 20120331
  2. ASPIRIN [Suspect]
     Dosage: 81 MG
  3. COLACE [Concomitant]
     Dosage: 100 MG
  4. MAGNESIUM HYDROXIDE [Concomitant]
     Dosage: 30 ML
  5. PROTONIX [Concomitant]
     Dosage: 40 MG
  6. LEVOTHYROXINE [Concomitant]
     Dosage: 0.1 MG
  7. ALLOPURINOL [Concomitant]
     Dosage: 100 MG

REACTIONS (3)
  - Haemorrhage intracranial [Unknown]
  - Cholelithiasis [Unknown]
  - Hepatic cyst [Unknown]
